FAERS Safety Report 8024537-1 (Version None)
Quarter: 2012Q1

REPORT INFORMATION
  Report Type: 
  Country: None (occurrence: None)
  Receive Date: 20120103
  Receipt Date: 20111221
  Transmission Date: 20120608
  Serious: Yes (Other)
  Sender: FDA-Public Use
  Company Number: 2011SP059259

PATIENT
  Age: 45 Year
  Sex: Female

DRUGS (1)
  1. VIRAFERONPEG [Suspect]
     Indication: HEPATITIS C
     Dates: end: 20050101

REACTIONS (2)
  - RIGHT VENTRICULAR FAILURE [None]
  - PULMONARY ARTERIAL HYPERTENSION [None]
